FAERS Safety Report 5196194-3 (Version None)
Quarter: 2006Q4

REPORT INFORMATION
  Report Type: 
  Country: None (occurrence: None)
  Receive Date: 20061221
  Receipt Date: 20061211
  Transmission Date: 20070319
  Serious: Yes (Other)
  Sender: FDA-Public Use
  Company Number: 000#8#2006-00485

PATIENT
  Age: 73 Year
  Sex: Male

DRUGS (3)
  1. NITROGLYCERIN [Suspect]
     Indication: ACUTE CORONARY SYNDROME
     Dosage: HIGH DOSES INTRAVENOUS (NOT OTHERWISE SPECIFIED)
     Route: 042
  2. HEPARIN [Suspect]
     Indication: ACUTE CORONARY SYNDROME
     Dosage: INTRAVENOUS (NOT OTHERWISE SPECIFIED)
     Route: 042
  3. ASPIRIN [Suspect]
     Indication: ACUTE CORONARY SYNDROME

REACTIONS (2)
  - BLOOD SODIUM DECREASED [None]
  - PITUITARY HAEMORRHAGE [None]
